FAERS Safety Report 10330915 (Version 1)
Quarter: 2014Q3

REPORT INFORMATION
  Report Type: Spontaneous
  Country: US (occurrence: None)
  Receive Date: 20140718
  Receipt Date: 20140718
  Transmission Date: 20150326
  Serious: Yes (Hospitalization)
  Sender: FDA-Public Use
  Company Number: 2014HINLIT0479

PATIENT
  Age: 47 Year
  Sex: Female

DRUGS (4)
  1. LITHIUM [Suspect]
     Active Substance: LITHIUM CARBONATE
     Indication: BIPOLAR DISORDER
  2. QUETIAPINE (QUETIAPINE) [Concomitant]
     Active Substance: QUETIAPINE
  3. METFORMIN [Concomitant]
     Active Substance: METFORMIN HYDROCHLORIDE
  4. NORMAL SALINE [Concomitant]
     Active Substance: SODIUM CHLORIDE

REACTIONS (7)
  - Nephrogenic diabetes insipidus [None]
  - Hypernatraemia [None]
  - Abdominal distension [None]
  - Nausea [None]
  - Ileus [None]
  - Toxicity to various agents [None]
  - Dehydration [None]
